FAERS Safety Report 24927009 (Version 2)
Quarter: 2025Q1

REPORT INFORMATION
  Report Type: Spontaneous
  Country: JP (occurrence: JP)
  Receive Date: 20250205
  Receipt Date: 20250324
  Transmission Date: 20250408
  Serious: Yes (Death, Hospitalization, Other)
  Sender: ASTELLAS
  Company Number: JP-ASTELLAS-2025-AER-004872

PATIENT
  Age: 77 Year
  Sex: Male

DRUGS (4)
  1. PROGRAF [Suspect]
     Active Substance: TACROLIMUS
     Indication: Renal transplant
     Route: 065
  2. MYCOPHENOLATE MOFETIL [Concomitant]
     Active Substance: MYCOPHENOLATE MOFETIL
     Indication: Renal transplant
     Route: 065
  3. METHYLPREDNISOLONE [Concomitant]
     Active Substance: METHYLPREDNISOLONE
     Indication: Renal transplant
     Route: 065
  4. BASILIXIMAB [Concomitant]
     Active Substance: BASILIXIMAB
     Indication: Renal transplant
     Route: 065

REACTIONS (10)
  - Chronic allograft nephropathy [Unknown]
  - Cerebral infarction [Recovering/Resolving]
  - Urinary retention [Unknown]
  - Pneumonia [Recovering/Resolving]
  - Decreased appetite [Unknown]
  - Anaemia [Unknown]
  - Depressed level of consciousness [Unknown]
  - Renal impairment [Unknown]
  - Death [Fatal]
  - Toxicity to various agents [Unknown]

NARRATIVE: CASE EVENT DATE: 20150401
